FAERS Safety Report 7456461-7 (Version None)
Quarter: 2011Q2

REPORT INFORMATION
  Report Type: 
  Country: None (occurrence: None)
  Receive Date: 20110503
  Receipt Date: 20101202
  Transmission Date: 20111010
  Serious: Yes (Disabling)
  Sender: FDA-Public Use
  Company Number: DE-BAYER-2010-000772

PATIENT
  Age: 48 Year
  Sex: Female
  Weight: 70 kg

DRUGS (3)
  1. VIANI [Concomitant]
     Indication: ASTHMA
     Dosage: UNK
  2. SULTANOL [Concomitant]
     Indication: ASTHMA
     Dosage: UNK
  3. AVELOX [Suspect]
     Indication: SINUSITIS
     Dosage: 400 MG, QD
     Dates: start: 20101201

REACTIONS (8)
  - DIZZINESS [None]
  - ASTHENIA [None]
  - ANOSMIA [None]
  - TEMPERATURE PERCEPTION TEST ABNORMAL [None]
  - DYSGEUSIA [None]
  - PERSONALITY DISORDER [None]
  - MENTAL DISORDER [None]
  - AGEUSIA [None]
